FAERS Safety Report 9457502 (Version 1)
Quarter: 2013Q3

REPORT INFORMATION
  Report Type: Spontaneous
  Country: US (occurrence: None)
  Receive Date: 20130812
  Receipt Date: 20130812
  Transmission Date: 20140515
  Serious: Yes (Disabling, Other)
  Sender: FDA-Public Use
  Company Number: None

PATIENT
  Age: 67 Year
  Sex: Male
  Weight: 83.92 kg

DRUGS (1)
  1. OXYCODONE [Suspect]
     Indication: SPINAL DISORDER
     Dosage: 1 TO 2 PILLS FOUR TIMES DAILY TAKEN BY MOUTH
     Route: 048
     Dates: start: 20130803, end: 20130810

REACTIONS (7)
  - Headache [None]
  - Drug ineffective [None]
  - Vision blurred [None]
  - Product quality issue [None]
  - Product substitution issue [None]
  - Drug effect increased [None]
  - Feeling abnormal [None]
